FAERS Safety Report 5637246-0 (Version None)
Quarter: 2008Q1

REPORT INFORMATION
  Report Type: 
  Country: None (occurrence: None)
  Receive Date: 20080225
  Receipt Date: 20070604
  Transmission Date: 20080703
  Serious: No
  Sender: FDA-Public Use
  Company Number: US-BRISTOL-MYERS SQUIBB COMPANY-13802566

PATIENT
  Sex: Female
  Weight: 61 kg

DRUGS (1)
  1. KENALOG [Suspect]
     Indication: DEAFNESS

REACTIONS (1)
  - DRUG INEFFECTIVE [None]
